FAERS Safety Report 15591125 (Version 2)
Quarter: 2022Q1

REPORT INFORMATION
  Report Type: Spontaneous
  Country: BR (occurrence: BR)
  Receive Date: 20181106
  Receipt Date: 20220130
  Transmission Date: 20220423
  Serious: Yes (Other)
  Sender: FDA-Public Use
  Company Number: BR-JAZZ-2018-BR-016090

PATIENT
  Age: 56 Year
  Sex: Male

DRUGS (1)
  1. DEFIBROTIDE SODIUM [Suspect]
     Active Substance: DEFIBROTIDE SODIUM
     Indication: Venoocclusive disease
     Dosage: UNK
     Route: 042
     Dates: start: 20180930, end: 20181021

REACTIONS (13)
  - Renal failure [Unknown]
  - Cryptosporidiosis infection [Unknown]
  - Hepatic failure [Unknown]
  - Hepatic encephalopathy [Unknown]
  - Renal injury [Unknown]
  - Ascites [Unknown]
  - Hepatic vein occlusion [Unknown]
  - Abdominal sepsis [Unknown]
  - Abdominal pain [Unknown]
  - Diarrhoea [Unknown]
  - Transaminases increased [Unknown]
  - Coagulation test [Unknown]
  - Blood bilirubin increased [Unknown]

NARRATIVE: CASE EVENT DATE: 20180101
